FAERS Safety Report 6032330-4 (Version None)
Quarter: 2009Q1

REPORT INFORMATION
  Report Type: 
  Country: None (occurrence: None)
  Receive Date: 20090109
  Receipt Date: 20090105
  Transmission Date: 20090719
  Serious: Yes (Other)
  Sender: FDA-Public Use
  Company Number: JP-JNJFOC-20081206228

PATIENT

DRUGS (1)
  1. FENTANYL CITRATE [Suspect]
     Indication: LARGE INTESTINE CARCINOMA
     Route: 062

REACTIONS (3)
  - ALTERED STATE OF CONSCIOUSNESS [None]
  - DIZZINESS [None]
  - TREATMENT NONCOMPLIANCE [None]
